FAERS Safety Report 8572530-2 (Version None)
Quarter: 2012Q3

REPORT INFORMATION
  Report Type: 
  Country: None (occurrence: None)
  Receive Date: 20120806
  Receipt Date: 20120726
  Transmission Date: 20120928
  Serious: Yes (Other)
  Sender: FDA-Public Use
  Company Number: US-BAYER-2012-078280

PATIENT
  Age: 85 Year
  Sex: Male
  Weight: 76.66 kg

DRUGS (5)
  1. CHOLESTEROL- AND TRIGLYCERIDE REDUCERS [Concomitant]
     Indication: BLOOD CHOLESTEROL INCREASED
     Route: 048
     Dates: start: 20070101
  2. XARELTO [Interacting]
     Indication: CEREBROVASCULAR ACCIDENT PROPHYLAXIS
     Dosage: 20 MG, QD
     Route: 048
     Dates: start: 20120501
  3. ASPIRIN [Suspect]
     Route: 048
     Dates: start: 20070101
  4. XARELTO [Interacting]
     Indication: ATRIAL FIBRILLATION
     Dosage: 20 MG, QD
     Route: 048
     Dates: start: 20120101, end: 20120501
  5. BENICAR [Concomitant]
     Indication: BLOOD PRESSURE ABNORMAL
     Dosage: 40 MG, UNK
     Route: 048

REACTIONS (5)
  - HAEMORRHAGE SUBCUTANEOUS [None]
  - HYPERTENSION [None]
  - HAEMORRHAGIC DIATHESIS [None]
  - FALL [None]
  - IMPAIRED HEALING [None]
